FAERS Safety Report 13796387 (Version 1)
Quarter: 2017Q3

REPORT INFORMATION
  Report Type: Report from Study
  Country: US (occurrence: US)
  Receive Date: 20170726
  Receipt Date: 20170726
  Transmission Date: 20171127
  Serious: No
  Sender: FDA-Public Use
  Company Number: US-AMGEN-USASL2017019437

PATIENT
  Age: 53 Year
  Sex: Male

DRUGS (3)
  1. KYPROLIS [Suspect]
     Active Substance: CARFILZOMIB
     Indication: PLASMA CELL MYELOMA
     Dosage: 20 MG/M2, UNK
     Route: 042
  2. KYPROLIS [Suspect]
     Active Substance: CARFILZOMIB
     Dosage: 27 MG/M2, DAY 01, 02, 08, 09, 15, AND 16.
     Route: 042
  3. KYPROLIS [Suspect]
     Active Substance: CARFILZOMIB
     Dosage: 27 MG/M2, DAY 01. 02, 15, AND 16 Q 28 DAYS.
     Route: 042
     Dates: start: 20160120

REACTIONS (2)
  - Intervertebral disc degeneration [Unknown]
  - Vertebral osteophyte [Unknown]

NARRATIVE: CASE EVENT DATE: 20170111
